FAERS Safety Report 4647620-7 (Version None)
Quarter: 2005Q2

REPORT INFORMATION
  Report Type: 
  Country: None (occurrence: None)
  Receive Date: 20050426
  Receipt Date: 20050413
  Transmission Date: 20051028
  Serious: Yes (Hospitalization)
  Sender: FDA-Public Use
  Company Number: MK200504-0175-1

PATIENT
  Age: 27 Year
  Sex: Male

DRUGS (1)
  1. BAROSPERSE ENEMA KT 454GM/16OZ BARIUM SULFATE [Suspect]
     Indication: BARIUM ENEMA
     Dosage: ONE TIME, PR
     Route: 054

REACTIONS (6)
  - HYPOTENSION [None]
  - LEUKOCYTOSIS [None]
  - PORTAL VEIN OCCLUSION [None]
  - PYREXIA [None]
  - RETROPERITONEAL ABSCESS [None]
  - SEPSIS [None]
